FAERS Safety Report 5332797-0 (Version None)
Quarter: 2007Q2

REPORT INFORMATION
  Report Type: 
  Country: None (occurrence: None)
  Receive Date: 20070523
  Receipt Date: 20070523
  Transmission Date: 20071010
  Serious: Yes (Life-Threatening, Hospitalization)
  Sender: FDA-Public Use
  Company Number: US-GENENTECH-235872

PATIENT
  Sex: Female

DRUGS (4)
  1. RITUXIMAB [Suspect]
     Indication: B-CELL LYMPHOMA
     Dosage: UNK, UNK
     Dates: start: 20070108
  2. CISPLATIN [Suspect]
     Indication: B-CELL LYMPHOMA
     Dosage: UNK, UNK
     Dates: start: 20070108
  3. CYTARABINE [Suspect]
     Indication: B-CELL LYMPHOMA
     Dosage: UNK, UNK
     Dates: start: 20070108
  4. DEXAMETHASONE 0.5MG TAB [Suspect]
     Indication: B-CELL LYMPHOMA
     Dosage: UNK, UNK
     Dates: start: 20070108

REACTIONS (1)
  - CEREBROVASCULAR ACCIDENT [None]
